FAERS Safety Report 17074869 (Version 1)
Quarter: 2019Q4

REPORT INFORMATION
  Report Type: Spontaneous
  Country: US (occurrence: US)
  Receive Date: 20191126
  Receipt Date: 20191126
  Transmission Date: 20200122
  Serious: No
  Sender: FDA-Public Use
  Company Number: US-AUROBINDO-AUR-APL-2019-061171

PATIENT
  Age: 53 Year
  Sex: Female
  Weight: 63 kg

DRUGS (3)
  1. LOSARTAN POTASSIUM AND HYDROCHLOROTHIAZIDE TABLETS 100 MG/12.5 MG [Suspect]
     Active Substance: HYDROCHLOROTHIAZIDE\LOSARTAN POTASSIUM
     Dosage: 1 DOSAGE FORM, ONCE A DAY
     Route: 065
     Dates: start: 20190828
  2. LOSARTAN POTASSIUM AND HYDROCHLOROTHIAZIDE TABLETS 100 MG/12.5 MG [Suspect]
     Active Substance: HYDROCHLOROTHIAZIDE\LOSARTAN POTASSIUM
     Indication: HYPERTENSION
     Dosage: UNK, LAST 08 YEARS
     Route: 065
  3. LOSARTAN POTASSIUM AND HYDROCHLOROTHIAZIDE TABLETS 100 MG/12.5 MG [Suspect]
     Active Substance: HYDROCHLOROTHIAZIDE\LOSARTAN POTASSIUM
     Dosage: 1 DOSAGE FORM, ONCE A DAY
     Route: 065
     Dates: start: 20190911

REACTIONS (5)
  - Palpitations [Not Recovered/Not Resolved]
  - Dizziness [Not Recovered/Not Resolved]
  - Chest discomfort [Not Recovered/Not Resolved]
  - Heart rate irregular [Not Recovered/Not Resolved]
  - Chest pain [Not Recovered/Not Resolved]
